FAERS Safety Report 16593671 (Version 2)
Quarter: 2019Q3

REPORT INFORMATION
  Report Type: Spontaneous
  Country: DE (occurrence: DE)
  Receive Date: 20190718
  Receipt Date: 20190725
  Transmission Date: 20191004
  Serious: Yes (Hospitalization)
  Sender: FDA-Public Use
  Company Number: DE-EXELIXIS-CABO-19022573

PATIENT
  Age: 58 Year
  Sex: Male
  Weight: 74 kg

DRUGS (14)
  1. KALIUM VERLA [Concomitant]
     Active Substance: POTASSIUM CITRATE
     Dosage: 780 MG, 1-1-1-0, BEUTEL ()
     Route: 048
  2. PANTOPRAZOLE [Concomitant]
     Active Substance: PANTOPRAZOLE
     Dosage: 40 MG, 1-0-0-0, TABLETTEN ()
     Route: 048
  3. CABOMETYX [Suspect]
     Active Substance: CABOZANTINIB S-MALATE
     Indication: PRODUCT USED FOR UNKNOWN INDICATION
     Dosage: 60 MG, 1-0-0-0-, NACH SCHEMA, ZULETZT AM 07.04.2018, TABLETTEN
     Route: 048
  4. HYDROMORPHONE [Concomitant]
     Active Substance: HYDROMORPHONE
     Dosage: 1.3 MG, BEI BEDARF, RETARD-KAPSELN ()
     Route: 048
  5. TORASEMIDE [Concomitant]
     Active Substance: TORSEMIDE
     Dosage: 5 MG, 1-0-0-0, TABLETTEN ()
     Route: 048
  6. METAMIZOL [Concomitant]
     Active Substance: METAMIZOLE SODIUM
     Dosage: 500 MG, 2-2-2-2, TABLETTEN ()
     Route: 048
  7. HYDROMORPHONE [Concomitant]
     Active Substance: HYDROMORPHONE
     Dosage: 12 MG, 1-0-1-0, RETARD-KAPSELN ()
     Route: 048
  8. MIRTAZAPIN [Concomitant]
     Active Substance: MIRTAZAPINE
     Dosage: 15 MG, 0-0-0-1, TABLETTEN ()
     Route: 048
  9. KLACID 500MG [Concomitant]
     Active Substance: CLARITHROMYCIN
     Dosage: 500 MG, 1-0-1-0, INJEKTIONS-/INFUSIONSLOESUNG ()
     Route: 042
  10. ARCOXIA [Concomitant]
     Active Substance: ETORICOXIB
     Dosage: 60 MG, 1-0-0-0, TABLETTEN ()
     Route: 048
  11. LYRICA [Concomitant]
     Active Substance: PREGABALIN
     Dosage: 150 MG, 1-0-1-0, KAPSELN ()
     Route: 048
  12. ONDANSETRON [Concomitant]
     Active Substance: ONDANSETRON
     Dosage: 8 MG, BEI BEDARF, TABLETTEN ()
     Route: 048
  13. PIPERACILLIN/TAZOBACTAM-ACTAVIS 4G/0,5G [Concomitant]
     Dosage: 4/0.5 G, 1-1-1-0, INJEKTIONS-/INFUSIONSLOESUNG ()
     Route: 042
  14. DEXAMETHASONE. [Concomitant]
     Active Substance: DEXAMETHASONE
     Dosage: 4 MG, 0.5-0.5-0.5-0.5, TABLETTEN ()
     Route: 048

REACTIONS (4)
  - Oedema peripheral [Unknown]
  - Cough [Unknown]
  - Chest pain [Unknown]
  - Dyspnoea [Unknown]
